FAERS Safety Report 25974803 (Version 1)
Quarter: 2025Q4

REPORT INFORMATION
  Report Type: Spontaneous
  Country: JP (occurrence: JP)
  Receive Date: 20251029
  Receipt Date: 20251029
  Transmission Date: 20260118
  Serious: Yes (Hospitalization, Other)
  Sender: MERCK SHARP & DOHME LLC
  Company Number: JP-009507513-2343191

PATIENT
  Age: 66 Year
  Sex: Male

DRUGS (4)
  1. KEYTRUDA [Suspect]
     Active Substance: PEMBROLIZUMAB
     Indication: Transitional cell cancer of renal pelvis and ureter metastatic
     Route: 065
  2. PADCEV [Suspect]
     Active Substance: ENFORTUMAB VEDOTIN-EJFV
     Indication: Bladder transitional cell carcinoma metastatic
     Route: 065
  3. PADCEV [Suspect]
     Active Substance: ENFORTUMAB VEDOTIN-EJFV
     Indication: Bladder transitional cell carcinoma metastatic
     Route: 065
  4. PADCEV [Suspect]
     Active Substance: ENFORTUMAB VEDOTIN-EJFV
     Indication: Bladder transitional cell carcinoma metastatic
     Dosage: A ONE-STEP DOSE REDUCTION
     Route: 065

REACTIONS (11)
  - Pneumonia bacterial [Unknown]
  - Malaise [Unknown]
  - Hospitalisation [Unknown]
  - Product use issue [Unknown]
  - Skin disorder [Recovered/Resolved]
  - Decreased appetite [Unknown]
  - Hospitalisation [Recovered/Resolved]
  - Inappropriate schedule of product administration [Unknown]
  - Living alone [Unknown]
  - Nutritional condition abnormal [Unknown]
  - Alcohol use [Unknown]
